FAERS Safety Report 14690206 (Version 6)
Quarter: 2018Q2

REPORT INFORMATION
  Report Type: Spontaneous
  Country: US (occurrence: US)
  Receive Date: 20180328
  Receipt Date: 20180611
  Transmission Date: 20180711
  Serious: Yes (Hospitalization)
  Sender: FDA-Public Use
  Company Number: US-PFIZER INC-2018124145

PATIENT
  Age: 45 Year
  Sex: Male
  Weight: 61 kg

DRUGS (8)
  1. TUMS [Concomitant]
     Active Substance: CALCIUM CARBONATE
     Dosage: UNK
  2. METAMUCIL [Concomitant]
     Active Substance: PLANTAGO SEED
     Dosage: UNK
  3. SUTENT [Suspect]
     Active Substance: SUNITINIB MALATE
     Indication: METASTATIC RENAL CELL CARCINOMA
     Dosage: 50 MG, CYCLIC (28 DAYS ON/14 DAYS OFF, TOOK FOR 3 DAYS)
     Dates: start: 20180317, end: 20180320
  4. SUTENT [Suspect]
     Active Substance: SUNITINIB MALATE
     Dosage: 50 MG, CYCLIC (28 DAYS ON/14 DAYS OFF)/ 2 WEEKS ON/1 WEEK OFF
     Dates: start: 20180327
  5. AMLODIPINE [Concomitant]
     Active Substance: AMLODIPINE BESYLATE
     Dosage: UNK
  6. CLONIDINE. [Concomitant]
     Active Substance: CLONIDINE
     Dosage: UNK
  7. SUTENT [Suspect]
     Active Substance: SUNITINIB MALATE
     Dosage: 50 MG, CYCLIC (2 WEEKS ON/1 WEEK OFF)
     Dates: start: 20180327
  8. COZAAR [Concomitant]
     Active Substance: LOSARTAN POTASSIUM
     Dosage: UNK

REACTIONS (16)
  - Swelling [Recovered/Resolved]
  - Dyspnoea [Recovered/Resolved]
  - Pain [Not Recovered/Not Resolved]
  - Constipation [Unknown]
  - Impaired healing [Unknown]
  - Dysgeusia [Recovering/Resolving]
  - Wound secretion [Unknown]
  - Rash [Recovering/Resolving]
  - Hyperkeratosis [Recovering/Resolving]
  - Abdominal distension [Recovered/Resolved]
  - Pain of skin [Unknown]
  - Skin exfoliation [Not Recovered/Not Resolved]
  - Pulmonary oedema [Unknown]
  - Condition aggravated [Unknown]
  - Yellow skin [Unknown]
  - Oral pain [Not Recovered/Not Resolved]
